FAERS Safety Report 7049178-4 (Version None)
Quarter: 2010Q4

REPORT INFORMATION
  Report Type: 
  Country: None (occurrence: None)
  Receive Date: 20101018
  Receipt Date: 20101008
  Transmission Date: 20110411
  Serious: Yes (Other)
  Sender: FDA-Public Use
  Company Number: AR-JNJFOC-20101002422

PATIENT
  Age: 23 Year
  Sex: Female

DRUGS (3)
  1. TOPAMAC [Suspect]
     Indication: MENTAL DISORDER
     Dosage: HALF PILL PER NIGHT
     Route: 048
  2. CLONAZEPAM [Concomitant]
     Indication: PRODUCT USED FOR UNKNOWN INDICATION
     Route: 065
  3. LEXAPRO [Concomitant]
     Indication: PRODUCT USED FOR UNKNOWN INDICATION
     Route: 065

REACTIONS (5)
  - ASTHENIA [None]
  - BLINDNESS TRANSIENT [None]
  - GLAUCOMA [None]
  - MYOPIA [None]
  - WRONG TECHNIQUE IN DRUG USAGE PROCESS [None]
